FAERS Safety Report 8580883-4 (Version None)
Quarter: 2012Q3

REPORT INFORMATION
  Report Type: 
  Country: None (occurrence: None)
  Receive Date: 20120726
  Receipt Date: 20120717
  Transmission Date: 20120928
  Serious: Yes (Hospitalization, Other)
  Sender: FDA-Public Use
  Company Number: 2012000180

PATIENT
  Age: 83 Year
  Sex: Female

DRUGS (7)
  1. ATHYMIL (MIANSERIN HYDROCHLORIDE) [Suspect]
     Indication: DEPRESSION
     Dosage: ORAL
     Route: 048
  2. ZOLPIDEM [Suspect]
     Indication: DEPRESSION
     Dosage: ORAL
     Route: 048
  3. PULMICORT [Suspect]
     Indication: ASTHMA
     Dates: start: 20120401
  4. ACEON [Suspect]
     Indication: HYPERTENSION
     Dosage: ORAL
     Route: 048
  5. ALPRAZOLAM [Suspect]
     Indication: DEPRESSION
     Dosage: ORAL
     Route: 048
  6. ATORVASTATIN CALCIUM [Suspect]
     Dosage: ORAL
     Route: 048
  7. ARICEPT [Suspect]
     Indication: DEMENTIA ALZHEIMER'S TYPE
     Dosage: ORAL
     Route: 048
     Dates: start: 20100201

REACTIONS (6)
  - ASTHMA [None]
  - PRESYNCOPE [None]
  - CONDITION AGGRAVATED [None]
  - ELECTROCARDIOGRAM QT PROLONGED [None]
  - FALL [None]
  - BRADYCARDIA [None]
